FAERS Safety Report 5730935-9 (Version None)
Quarter: 2008Q2

REPORT INFORMATION
  Report Type: 
  Country: None (occurrence: None)
  Receive Date: 20080507
  Receipt Date: 20080428
  Transmission Date: 20081010
  Serious: Yes (Congenital Anomaly, Other)
  Sender: FDA-Public Use
  Company Number: US-GILEAD-2008-0015316

PATIENT
  Sex: Male
  Weight: 3.518 kg

DRUGS (8)
  1. TRUVADA [Suspect]
     Indication: DRUG EXPOSURE DURING PREGNANCY
     Route: 064
     Dates: start: 20061121, end: 20070308
  2. NORVIR [Suspect]
     Indication: DRUG EXPOSURE DURING PREGNANCY
     Route: 064
     Dates: start: 20061121, end: 20070308
  3. ATAZANAVIR SULFATE [Suspect]
     Indication: DRUG EXPOSURE DURING PREGNANCY
     Route: 064
     Dates: start: 20061121, end: 20070308
  4. ZIDOVUDINE [Concomitant]
     Indication: DRUG EXPOSURE DURING PREGNANCY
     Dosage: 2 MG/KG/HR
     Route: 064
     Dates: start: 20070308, end: 20070308
  5. ZIDOVUDINE [Concomitant]
     Dosage: 1 MG/KG/HR
     Route: 064
     Dates: start: 20070308, end: 20070308
  6. METHADONE HCL [Concomitant]
     Indication: DRUG EXPOSURE DURING PREGNANCY
     Route: 064
  7. SEROQUEL [Concomitant]
     Indication: DRUG EXPOSURE DURING PREGNANCY
     Route: 064
  8. HYDROXYZINE [Concomitant]
     Indication: DRUG EXPOSURE DURING PREGNANCY
     Route: 064

REACTIONS (7)
  - ATRIAL SEPTAL DEFECT [None]
  - DRUG WITHDRAWAL SYNDROME NEONATAL [None]
  - LEFT VENTRICULAR DYSFUNCTION [None]
  - MITRAL VALVE INCOMPETENCE [None]
  - SUPRAVENTRICULAR TACHYCARDIA [None]
  - TRICUSPID VALVE INCOMPETENCE [None]
  - WOLFF-PARKINSON-WHITE SYNDROME CONGENITAL [None]
